FAERS Safety Report 4886021-3 (Version None)
Quarter: 2006Q1

REPORT INFORMATION
  Report Type: 
  Country: None (occurrence: None)
  Receive Date: 20060118
  Receipt Date: 20060118
  Transmission Date: 20060701
  Serious: No
  Sender: FDA-Public Use
  Company Number: None

PATIENT
  Sex: Male
  Weight: 61.6892 kg

DRUGS (2)
  1. LEVAQUIN [Suspect]
  2. FLAGYL [Suspect]

REACTIONS (2)
  - TENDON RUPTURE [None]
  - TENDONITIS [None]
